FAERS Safety Report 9883155 (Version 1)
Quarter: 2014Q1

REPORT INFORMATION
  Report Type: Report from Study
  Country: EG (occurrence: EG)
  Receive Date: 20140208
  Receipt Date: 20140208
  Transmission Date: 20141002
  Serious: Yes (Hospitalization)
  Sender: FDA-Public Use
  Company Number: EG-ROCHE-1345126

PATIENT
  Age: 38 Year
  Sex: Male

DRUGS (3)
  1. PEGASYS [Suspect]
     Indication: HEPATITIS C
     Route: 058
     Dates: start: 20130817
  2. RIBAVIRIN [Suspect]
     Indication: HEPATITIS C
     Dosage: 6 TABLETS DAILY
     Route: 048
     Dates: start: 20130817
  3. ELTROXIN [Concomitant]

REACTIONS (4)
  - Syncope [Recovering/Resolving]
  - Fatigue [Not Recovered/Not Resolved]
  - Dizziness [Not Recovered/Not Resolved]
  - Laziness [Not Recovered/Not Resolved]
